FAERS Safety Report 15127783 (Version 1)
Quarter: 2018Q3

REPORT INFORMATION
  Report Type: Spontaneous
  Country: US (occurrence: US)
  Receive Date: 20180710
  Receipt Date: 20180710
  Transmission Date: 20181010
  Serious: No
  Sender: FDA-Public Use
  Company Number: US-LEO PHARMA-309746

PATIENT
  Age: 50 Year
  Sex: Male

DRUGS (2)
  1. PICATO [Suspect]
     Active Substance: INGENOL MEBUTATE
     Indication: ACTINIC KERATOSIS
     Route: 061
  2. PICATO [Suspect]
     Active Substance: INGENOL MEBUTATE
     Route: 061

REACTIONS (2)
  - Application site erythema [Not Recovered/Not Resolved]
  - Inappropriate schedule of drug administration [Unknown]
